FAERS Safety Report 8557068 (Version 3)
Quarter: 2014Q2

REPORT INFORMATION
  Report Type: Spontaneous
  Country: US (occurrence: US)
  Receive Date: 20120511
  Receipt Date: 20140415
  Transmission Date: 20141212
  Serious: Yes (Hospitalization, Other)
  Sender: FDA-Public Use
  Company Number: US-BAYER-2012-045725

PATIENT
  Age: 21 Year
  Sex: Female

DRUGS (5)
  1. YASMIN [Suspect]
  2. DILAUDID [Concomitant]
     Indication: PAIN
  3. PROZAC [Concomitant]
  4. ATIVAN [Concomitant]
  5. SEROQUEL [Concomitant]

REACTIONS (8)
  - Pulmonary embolism [None]
  - Injury [None]
  - Pain [None]
  - Anxiety [None]
  - Anhedonia [None]
  - Fear [None]
  - Quality of life decreased [None]
  - Cholecystitis [None]
